FAERS Safety Report 23222036 (Version 3)
Quarter: 2024Q1

REPORT INFORMATION
  Report Type: Spontaneous
  Country: US (occurrence: US)
  Receive Date: 20231123
  Receipt Date: 20240311
  Transmission Date: 20240410
  Serious: Yes (Other)
  Sender: FDA-Public Use
  Company Number: US-TEVA-2023-US-2946919

PATIENT
  Age: 15 Year
  Sex: Female

DRUGS (9)
  1. DEXAMETHASONE [Suspect]
     Active Substance: DEXAMETHASONE
     Indication: Nausea
     Route: 065
  2. IMATINIB [Suspect]
     Active Substance: IMATINIB
     Indication: Gastrointestinal stromal tumour
     Route: 065
  3. IMATINIB [Suspect]
     Active Substance: IMATINIB
     Indication: Gastrointestinal stromal tumour
     Route: 065
  4. NILOTINIB [Suspect]
     Active Substance: NILOTINIB
     Indication: Gastrointestinal stromal tumour
     Route: 065
  5. SUNITINIB [Suspect]
     Active Substance: SUNITINIB
     Indication: Gastrointestinal stromal tumour
     Dosage: DOSAGE TEXT: 4 WEEKS ON AND 2 WEEKS OFF
     Route: 065
  6. VANDETANIB [Suspect]
     Active Substance: VANDETANIB
     Indication: Gastrointestinal stromal tumour
     Route: 065
  7. TEMOZOLOMIDE [Suspect]
     Active Substance: TEMOZOLOMIDE
     Indication: Gastrointestinal stromal tumour
     Dosage: DOSAGE TEXT: ADMINISTERED DAILY FOR 7 DAYS IN 21-DAY CYCLES
     Route: 065
  8. OLAPARIB [Concomitant]
     Active Substance: OLAPARIB
     Indication: Gastrointestinal stromal tumour
     Dosage: DOSAGE TEXT: ADMINISTERED 2 TIMES DAILY FOR 7 DAYS IN 21-DAY CYCLES
     Route: 065
  9. REGORAFENIB [Suspect]
     Active Substance: REGORAFENIB
     Indication: Gastrointestinal stromal tumour
     Dosage: DOSAGE TEXT: 21 DAYS ON, 7 DAYS OFF
     Route: 065

REACTIONS (9)
  - Hypertension [Unknown]
  - Drug ineffective [Unknown]
  - Drug intolerance [Unknown]
  - Toxicity to various agents [Unknown]
  - Skin toxicity [Unknown]
  - Nephropathy toxic [Unknown]
  - Drug-induced liver injury [Unknown]
  - Nausea [Unknown]
  - Substance-induced psychotic disorder [Unknown]
